FAERS Safety Report 9636260 (Version 2)
Quarter: 2013Q4

REPORT INFORMATION
  Report Type: Spontaneous
  Country: US (occurrence: US)
  Receive Date: 20131021
  Receipt Date: 20131021
  Transmission Date: 20140711
  Serious: Yes (Other)
  Sender: FDA-Public Use
  Company Number: US-OTSUKA-US-2013-11246

PATIENT
  Age: 40 Year
  Sex: Female
  Weight: 70.3 kg

DRUGS (4)
  1. ABILIFY MAINTENA [Suspect]
     Indication: SCHIZOPHRENIA
     Dosage: 400 MG MILLIGRAM(S), SINGLE
     Route: 030
     Dates: start: 20130410
  2. ABILIFY MAINTENA [Suspect]
     Dosage: UNK
     Dates: start: 20130513
  3. ABILIFY MAINTENA [Suspect]
     Dosage: UNK
     Dates: start: 20130613
  4. ABILIFY MAINTENA [Suspect]
     Dosage: UNK
     Dates: start: 20130715

REACTIONS (1)
  - Blood creatine phosphokinase increased [Unknown]
